FAERS Safety Report 9305643 (Version 1)
Quarter: 2013Q1

REPORT INFORMATION
  Report Type: Spontaneous
  Country: JP (occurrence: None)
  Receive Date: 20130111
  Receipt Date: 20130111
  Transmission Date: 20140127
  Serious: Yes (Death)
  Sender: FDA-Public Use
  Company Number: JP-2012-16752

PATIENT
  Age: 86 Year
  Sex: Male
  Weight: 45 kg

DRUGS (4)
  1. SAMSCA (TOLVAPTAN) TABLET, 15MG MILLIGRAM(S) [Suspect]
     Indication: POLYURIA
     Route: 048
     Dates: start: 20110302, end: 20110306
  2. SAMSCA (TOLVAPTAN) TABLET, 15MG MILLIGRAM(S) [Suspect]
     Indication: CARDIAC FAILURE
     Route: 048
     Dates: start: 20110302, end: 20110306
  3. SAMSCA [Suspect]
  4. SAMSCA [Suspect]

REACTIONS (9)
  - Hypernatraemia [None]
  - Cardiac failure [None]
  - Disseminated intravascular coagulation [None]
  - Multi-organ failure [None]
  - Blood alkaline phosphatase increased [None]
  - Gamma-glutamyltransferase increased [None]
  - Blood uric acid increased [None]
  - Blood urea increased [None]
  - Blood creatinine increased [None]
